FAERS Safety Report 9587789 (Version 1)
Quarter: 2013Q4

REPORT INFORMATION
  Report Type: Spontaneous
  Country: US (occurrence: US)
  Receive Date: 20131003
  Receipt Date: 20131003
  Transmission Date: 20140711
  Serious: Yes (Other)
  Sender: FDA-Public Use
  Company Number: US-PFIZER INC-2013280113

PATIENT
  Age: 50 Year
  Sex: Female

DRUGS (8)
  1. XELJANZ [Suspect]
     Indication: RHEUMATOID ARTHRITIS
     Dosage: 5 MG, TWICE A DAY
     Route: 048
     Dates: end: 20130924
  2. CALCITRIOL [Concomitant]
     Dosage: 0.5 UG
  3. BYSTOLIC [Concomitant]
     Dosage: 10 MG
  4. PREDNISONE [Concomitant]
     Dosage: 10 MG
  5. PEPCID [Concomitant]
     Dosage: 40 MG
  6. METHOTREXATE [Concomitant]
     Dosage: 2.5 MG
  7. TYLENOL PM [Concomitant]
     Dosage: UNK
  8. TRIAM/HCTZ [Concomitant]
     Dosage: 25 HYDROCHLOROTHIAZIDE, 37.5 TRIAMTERENE

REACTIONS (1)
  - Basal cell carcinoma [Unknown]
